FAERS Safety Report 6808850-9 (Version None)
Quarter: 2010Q2

REPORT INFORMATION
  Report Type: 
  Country: None (occurrence: None)
  Receive Date: 20100630
  Receipt Date: 20091012
  Transmission Date: 20101027
  Serious: No
  Sender: FDA-Public Use
  Company Number: US-PFIZER INC-2009252785

PATIENT
  Sex: Male
  Weight: 107.3 kg

DRUGS (1)
  1. TIKOSYN [Suspect]
     Indication: CARDIAC ABLATION
     Dosage: 250 UG, 2X/DAY
     Route: 048

REACTIONS (1)
  - TOOTH FRACTURE [None]
